FAERS Safety Report 5676369-7 (Version None)
Quarter: 2008Q1

REPORT INFORMATION
  Report Type: 
  Country: None (occurrence: None)
  Receive Date: 20080321
  Receipt Date: 20080311
  Transmission Date: 20080703
  Serious: Yes (Other)
  Sender: FDA-Public Use
  Company Number: US-PFIZER INC-2008023265

PATIENT
  Sex: Female

DRUGS (1)
  1. LYRICA [Suspect]
     Indication: BACK PAIN
     Dates: start: 20080117, end: 20080201

REACTIONS (1)
  - ABORTION SPONTANEOUS [None]
